FAERS Safety Report 7799260-9 (Version None)
Quarter: 2011Q4

REPORT INFORMATION
  Report Type: 
  Country: None (occurrence: None)
  Receive Date: 20111006
  Receipt Date: 20110209
  Transmission Date: 20120403
  Serious: No
  Sender: FDA-Public Use
  Company Number: US-GLAXOSMITHKLINE-A0912688A

PATIENT
  Age: 16 Year
  Sex: Male

DRUGS (2)
  1. DUAC [Suspect]
     Indication: ACNE
     Dosage: 1APP SINGLE DOSE
     Route: 061
     Dates: start: 20110208, end: 20110208
  2. NO CONCURRENT MEDICATION [Concomitant]

REACTIONS (3)
  - INFLAMMATION [None]
  - PRURITUS [None]
  - ERYTHEMA [None]
